FAERS Safety Report 20610157 (Version 2)
Quarter: 2022Q1

REPORT INFORMATION
  Report Type: Spontaneous
  Country: US (occurrence: None)
  Receive Date: 20220318
  Receipt Date: 20220321
  Transmission Date: 20220423
  Serious: Yes (Other)
  Sender: FDA-Public Use
  Company Number: US-ROCHE-3051950

PATIENT
  Sex: Male
  Weight: 82.6 kg

DRUGS (15)
  1. KLONOPIN [Suspect]
     Active Substance: CLONAZEPAM
     Indication: Product used for unknown indication
     Dosage: 1 DF DAILY AT BEDTIME
     Route: 048
     Dates: start: 20191104
  2. ASPIRIN [Concomitant]
     Active Substance: ASPIRIN
  3. ZYRTEC [Concomitant]
     Active Substance: CETIRIZINE HYDROCHLORIDE
  4. PERIDEX (UNITED STATES) [Concomitant]
  5. VITAMIN D3 [Concomitant]
     Active Substance: CHOLECALCIFEROL
  6. DEXTRAN 70;HYPROMELLOSE [Concomitant]
  7. PROSCAR [Concomitant]
     Active Substance: FINASTERIDE
  8. FLUAD NOS [Concomitant]
     Active Substance: INFLUENZA VIRUS VACCINE
  9. EFUDEX [Concomitant]
     Active Substance: FLUOROURACIL
  10. ATROVENT [Concomitant]
     Active Substance: IPRATROPIUM BROMIDE
  11. LOPRESSOR [Concomitant]
     Active Substance: METOPROLOL TARTRATE
  12. ALTACE [Concomitant]
     Active Substance: RAMIPRIL
  13. ZOCOR [Concomitant]
     Active Substance: SIMVASTATIN
  14. SODIUM FLUORIDE [Concomitant]
     Active Substance: SODIUM FLUORIDE
  15. FLOMAX [Concomitant]
     Active Substance: TAMSULOSIN HYDROCHLORIDE

REACTIONS (7)
  - Deafness [Unknown]
  - Anaemia [Unknown]
  - Cough [Unknown]
  - Breast pain [Unknown]
  - Vitamin D deficiency [Unknown]
  - Chest pain [Unknown]
  - Laboratory test abnormal [Unknown]
